FAERS Safety Report 20431544 (Version 1)
Quarter: 2022Q1

REPORT INFORMATION
  Report Type: Spontaneous
  Country: IN (occurrence: IN)
  Receive Date: 20220204
  Receipt Date: 20220204
  Transmission Date: 20220424
  Serious: Yes (Death, Other)
  Sender: FDA-Public Use
  Company Number: IN-PFIZER INC-2018460284

PATIENT
  Age: 70 Year
  Sex: Male
  Weight: 70 kg

DRUGS (3)
  1. SUTENT [Suspect]
     Active Substance: SUNITINIB MALATE
     Indication: Metastatic renal cell carcinoma
     Dosage: 37.5 MG, CYCLIC (25+12.5MG 2 WEEK ON AND 1 WEEK OFF)
     Route: 048
     Dates: start: 20181110
  2. GROWELL XT [Concomitant]
     Dosage: UNK (100(1 MONTH))
  3. PANTONIL [PENTAZOCINE HYDROCHLORIDE] [Concomitant]
     Dosage: UNK (40P 100 PER 1 MONTH)

REACTIONS (7)
  - Death [Fatal]
  - Thrombosis [Unknown]
  - Neoplasm progression [Unknown]
  - Abdominal hernia [Unknown]
  - Blood pressure increased [Unknown]
  - White blood cell count decreased [Unknown]
  - Haemoglobin decreased [Unknown]

NARRATIVE: CASE EVENT DATE: 20200319
